FAERS Safety Report 5923636-5 (Version None)
Quarter: 2008Q3

REPORT INFORMATION
  Report Type: 
  Country: None (occurrence: None)
  Receive Date: 20080909
  Receipt Date: 20080123
  Transmission Date: 20090109
  Serious: Yes (Other)
  Sender: FDA-Public Use
  Company Number: 163-20785-08011255

PATIENT
  Age: 61 Year
  Sex: Male

DRUGS (2)
  1. THALOMID [Suspect]
     Indication: MALIGNANT SOFT TISSUE NEOPLASM
     Dosage: 100-200 MG, 1 IN 1 D, ORAL
     Route: 048
     Dates: start: 20070219, end: 20070906
  2. THALOMID [Suspect]
     Indication: METASTASES TO LUNG
     Dosage: 100-200 MG, 1 IN 1 D, ORAL
     Route: 048
     Dates: start: 20070219, end: 20070906

REACTIONS (2)
  - NEUROPATHY PERIPHERAL [None]
  - NYSTAGMUS [None]
